FAERS Safety Report 11590238 (Version 1)
Quarter: 2015Q4

REPORT INFORMATION
  Report Type: Spontaneous
  Country: US (occurrence: US)
  Receive Date: 20151002
  Receipt Date: 20151002
  Transmission Date: 20160304
  Serious: Yes (Hospitalization, Other)
  Sender: FDA-Public Use
  Company Number: US-BAYER-2015-431339

PATIENT
  Age: 50 Year
  Sex: Male

DRUGS (1)
  1. BETASERON [Suspect]
     Active Substance: INTERFERON BETA-1B
     Indication: RELAPSING-REMITTING MULTIPLE SCLEROSIS
     Dosage: 0.25 MG, QOD
     Route: 058
     Dates: start: 19951201, end: 20150813

REACTIONS (7)
  - Pain in extremity [None]
  - Musculoskeletal stiffness [None]
  - Cellulitis [None]
  - Injection site pain [None]
  - Abasia [None]
  - Hyperaesthesia [None]
  - Injection site swelling [None]

NARRATIVE: CASE EVENT DATE: 20150731
